FAERS Safety Report 24742861 (Version 1)
Quarter: 2024Q4

REPORT INFORMATION
  Report Type: Spontaneous
  Country: GB (occurrence: GB)
  Receive Date: 20241217
  Receipt Date: 20241217
  Transmission Date: 20250115
  Serious: Yes (Hospitalization, Other)
  Sender: ORGANON
  Company Number: None

PATIENT
  Age: 76 Year
  Sex: Male

DRUGS (20)
  1. SIMVASTATIN [Suspect]
     Active Substance: SIMVASTATIN
     Dosage: 20 MILLIGRAM
  2. CODEINE [Concomitant]
     Active Substance: CODEINE
     Dosage: 15 MILLIGRAM (MG) TABLETS TAKE 1-2 EVERY 6 HOURS (HRS). AS NEEDED (PRN)  IF NO RELIEF WITH PARACETAM
  3. CIPROFLOXACIN AND DEXAMETHASONE [Concomitant]
     Active Substance: CIPROFLOXACIN HYDROCHLORIDE\DEXAMETHASONE
     Dosage: UNK
  4. GONADORELIN [Concomitant]
     Active Substance: GONADORELIN
     Dosage: 22.5 MILLIGRAM (MG) POWDER AND SOLVENT FOR SUSPENSION FOR INJECTION VIALS AS DIRECTED - DUE THIS WEE
  5. DERMOL [BENZALKONIUM CHLORIDE;CHLORHEXIDINE HYDROCHLORIDE;ISOPROPYL MY [Concomitant]
     Dosage: 500 LOTIONS APPLY TO SKIN OR USE AS A SOAP SUBSTITUTE, AS NEEDED (PRN)
  6. DERMOL [BENZALKONIUM CHLORIDE;CHLORHEXIDINE HYDROCHLORIDE;ISOPROPYL MY [Concomitant]
     Dosage: 600 BATH EMOLLIENT ADD 15 MILLILITER (ML)-30 ML TO BATH WATER
  7. DERMOL [BENZALKONIUM CHLORIDE;CHLORHEXIDINE HYDROCHLORIDE;ISOPROPYL MY [Concomitant]
     Dosage: 500-GRAM BOTTLE APPLY TO SKIN OR USE AS A SOAP SUBSTITUTE - AS NEEDED (PRN)
  8. ENSURE PLUS JUCE [Concomitant]
     Dosage: TWO TO BE TAKEN EACH DAY 36 X 220 MILLILITER (ML) - MILKSHAKE ON TO TAKE OUT (TTO)
  9. CHOLECALCIFEROL [Concomitant]
     Active Substance: CHOLECALCIFEROL
     Dosage: UNK
  10. DEXAMETHASONE;TRAMAZOLINE [Concomitant]
     Dosage: UNK
  11. DEXAMETHASONE [Concomitant]
     Active Substance: DEXAMETHASONE
     Dosage: 500 MICROGRAM TABLETS TO BE TAKEN AS DIRECTED- TAKES 1 OM DOSE INCREASED BY INPAT ONCOL
  12. LANSOPRAZOLE [Concomitant]
     Active Substance: LANSOPRAZOLE
     Dosage: 30 MILLIGRAM (MG) GASTRO-RESISTANT CAPSULES ONE TO BE TAKEN EACH MORNING
  13. SIMVASTATIN [Concomitant]
     Active Substance: SIMVASTATIN
     Dosage: 20 MILLIGRAM (MG) TABLETS ONE TO BE TAKEN AT NIGHT
  14. CHLORTETRACYCLINE\CLOBETASONE\NYSTATIN [Concomitant]
     Active Substance: CHLORTETRACYCLINE\CLOBETASONE\NYSTATIN
     Dosage: APPLY TWO TIME (BD) (PRN)
  15. CYCLIZINE [Concomitant]
     Active Substance: CYCLIZINE
     Dosage: 50 MILLIGRAM (MG) TABLETS ONE TO BE TAKEN UP TO THREE TIMES A DAY FOR NAUSEA 42 TABLET- TAKES THREE
  16. AZATHIOPRINE [Concomitant]
     Active Substance: AZATHIOPRINE
     Dosage: 25 MILLIGRAM (MG) 1O MONTH (M)- HAS NOT BEEN USING RECENTLY DUE TO ILLNESS
  17. MINERAL OIL\PETROLATUM\WAX, EMULSIFYING [Concomitant]
     Active Substance: MINERAL OIL\PETROLATUM\WAX, EMULSIFYING
     Dosage: AS NEEDED- PRN
  18. BEROCCA [ASCORBIC ACID;BIOTIN;CALCIUM CARBONATE;CALCIUM PANTOTHENATE;C [Concomitant]
  19. ALLOPURINOL [Concomitant]
     Active Substance: ALLOPURINOL
     Dosage: 100 MILLIGRAM (MG) TABLETS ONE TO BE TAKEN DAILY
  20. DIAZEPAM [Concomitant]
     Active Substance: DIAZEPAM
     Dosage: 2 MG TABLETS 1-2 TO BE TAKEN THREE TIMES A DAY AS NEEDED (PRN) FOR ACUTE ANXIETY 28 TABLET- ONLY USI

REACTIONS (1)
  - Neck pain [Unknown]
